FAERS Safety Report 12607901 (Version 2)
Quarter: 2016Q3

REPORT INFORMATION
  Report Type: Spontaneous
  Country: FR (occurrence: FR)
  Receive Date: 20160729
  Receipt Date: 20160813
  Transmission Date: 20161109
  Serious: Yes (Hospitalization)
  Sender: FDA-Public Use
  Company Number: FR-JNJFOC-20160722902

PATIENT
  Sex: Female

DRUGS (2)
  1. XARELTO [Suspect]
     Active Substance: RIVAROXABAN
     Indication: SCLEROTHERAPY
     Route: 048
     Dates: start: 20150203, end: 20150211
  2. XARELTO [Suspect]
     Active Substance: RIVAROXABAN
     Indication: SCLEROTHERAPY
     Route: 048
     Dates: start: 20160115, end: 20160125

REACTIONS (4)
  - Prothrombin time shortened [Recovered/Resolved with Sequelae]
  - Pruritus [Recovered/Resolved]
  - Jaundice [Recovered/Resolved]
  - Nausea [Recovered/Resolved]

NARRATIVE: CASE EVENT DATE: 2015
